FAERS Safety Report 14003172 (Version 1)
Quarter: 2017Q3

REPORT INFORMATION
  Report Type: Spontaneous
  Country: US (occurrence: US)
  Receive Date: 20170922
  Receipt Date: 20170922
  Transmission Date: 20171128
  Serious: Yes (Other)
  Sender: FDA-Public Use
  Company Number: US-BRISTOL-MYERS SQUIBB COMPANY-BMS-2017-083467

PATIENT
  Age: 50 Year
  Sex: Female

DRUGS (1)
  1. SPRYCEL [Suspect]
     Active Substance: DASATINIB
     Indication: PRODUCT USED FOR UNKNOWN INDICATION
     Dosage: 20 MG, QD
     Route: 048
     Dates: start: 20170606, end: 20170818

REACTIONS (5)
  - Pulmonary oedema [Unknown]
  - Migraine [Unknown]
  - Rash generalised [Unknown]
  - Prescribed underdose [Unknown]
  - Weight increased [Unknown]

NARRATIVE: CASE EVENT DATE: 20170818
